FAERS Safety Report 21001225 (Version 17)
Quarter: 2025Q1

REPORT INFORMATION
  Report Type: Report from Study
  Country: US (occurrence: US)
  Receive Date: 20220624
  Receipt Date: 20250128
  Transmission Date: 20250408
  Serious: Yes (Hospitalization, Other)
  Sender: TAKEDA
  Company Number: US-TAKEDA-2022TUS009404

PATIENT
  Age: 65 Year
  Sex: Female
  Weight: 73 kg

DRUGS (27)
  1. TEDUGLUTIDE [Suspect]
     Active Substance: TEDUGLUTIDE
     Indication: Intestinal fistula
     Dosage: 3.51 MILLIGRAM, QD
     Dates: start: 20220114
  2. TEDUGLUTIDE [Suspect]
     Active Substance: TEDUGLUTIDE
     Indication: Short-bowel syndrome
     Dosage: 3.51 MILLIGRAM, QD
  3. TEDUGLUTIDE [Suspect]
     Active Substance: TEDUGLUTIDE
     Dosage: 3.51 MILLIGRAM, QD
  4. TEDUGLUTIDE [Suspect]
     Active Substance: TEDUGLUTIDE
     Dosage: 3.51 MILLIGRAM, QD
  5. TEDUGLUTIDE [Suspect]
     Active Substance: TEDUGLUTIDE
     Dosage: 3.51 MILLIGRAM, QD
  6. TEDUGLUTIDE [Suspect]
     Active Substance: TEDUGLUTIDE
     Dosage: 3.51 MILLIGRAM, QD
  7. TEDUGLUTIDE [Suspect]
     Active Substance: TEDUGLUTIDE
     Dosage: 3.51 MILLIGRAM, QD
  8. TEDUGLUTIDE [Suspect]
     Active Substance: TEDUGLUTIDE
     Dosage: 3.51 MILLIGRAM, QD
  9. TEDUGLUTIDE [Suspect]
     Active Substance: TEDUGLUTIDE
     Dosage: 3.51 MILLIGRAM, QD
  10. TEDUGLUTIDE [Suspect]
     Active Substance: TEDUGLUTIDE
     Dosage: 3.51 MILLIGRAM, QD
  11. FERROUS SULFATE ANHYDROUS [Suspect]
     Active Substance: FERROUS SULFATE ANHYDROUS
     Indication: Product used for unknown indication
  12. HYDRALAZINE [Suspect]
     Active Substance: HYDRALAZINE HYDROCHLORIDE
     Indication: Product used for unknown indication
  13. TRAMADOL HCL [Concomitant]
     Active Substance: TRAMADOL HYDROCHLORIDE
  14. NORVASC [Concomitant]
     Active Substance: AMLODIPINE BESYLATE
  15. COREG [Concomitant]
     Active Substance: CARVEDILOL
  16. ACETAMINOPHEN\HYDROCODONE [Concomitant]
     Active Substance: ACETAMINOPHEN\HYDROCODONE
  17. CYMBALTA [Concomitant]
     Active Substance: DULOXETINE HYDROCHLORIDE
  18. POTASSIUM CHLORIDE [Concomitant]
     Active Substance: POTASSIUM CHLORIDE
  19. TYLENOL [Concomitant]
     Active Substance: ACETAMINOPHEN
  20. PEPCID [Concomitant]
     Active Substance: FAMOTIDINE
  21. METHOCARBAMOL [Concomitant]
     Active Substance: METHOCARBAMOL
  22. AMLODIPINE BESYLATE [Concomitant]
     Active Substance: AMLODIPINE BESYLATE
  23. VITAMIN D3 [Concomitant]
     Active Substance: CHOLECALCIFEROL
  24. DULOXETINE HYDROCHLORIDE [Concomitant]
     Active Substance: DULOXETINE HYDROCHLORIDE
  25. TPN [Concomitant]
     Active Substance: AMINO ACIDS\DEXTROSE\ELECTROLYTES NOS\SOYBEAN OIL
  26. DAPTOMYCIN [Concomitant]
     Active Substance: DAPTOMYCIN
  27. MICAFUNGIN [Concomitant]
     Active Substance: MICAFUNGIN SODIUM

REACTIONS (20)
  - Vascular device infection [Unknown]
  - Malaise [Unknown]
  - Localised infection [Unknown]
  - Osteomyelitis [Unknown]
  - Haemorrhage [Unknown]
  - Asthenia [Unknown]
  - Dry mouth [Unknown]
  - Drug hypersensitivity [Unknown]
  - Back pain [Unknown]
  - Pain [Unknown]
  - Fall [Unknown]
  - Gastrointestinal stoma output abnormal [Unknown]
  - Off label use [Unknown]
  - Product dose omission issue [Unknown]
  - Weight increased [Unknown]
  - Haematoma [Unknown]
  - Appetite disorder [Unknown]
  - Insomnia [Unknown]
  - Decreased appetite [Not Recovered/Not Resolved]
  - Nausea [Unknown]

NARRATIVE: CASE EVENT DATE: 20220114
